FAERS Safety Report 4517307-X (Version None)
Quarter: 2004Q4

REPORT INFORMATION
  Report Type: 
  Country: None (occurrence: None)
  Receive Date: 20041005
  Receipt Date: 20040621
  Transmission Date: 20050328
  Serious: Yes (Life-Threatening)
  Sender: FDA-Public Use
  Company Number: SU-2004-002466

PATIENT
  Age: 84 Year
  Sex: Male
  Weight: 56.6996 kg

DRUGS (4)
  1. BENICAR HCT [Suspect]
     Indication: HYPERTENSION
     Dosage: 40.125 MG QD PO
     Route: 048
     Dates: start: 20040508, end: 20040614
  2. LIPITOR [Concomitant]
  3. LOPRESSOR [Concomitant]
  4. SYNTHROID [Concomitant]

REACTIONS (2)
  - HYPONATRAEMIA [None]
  - SYNCOPE [None]
